FAERS Safety Report 22317240 (Version 1)
Quarter: 2023Q2

REPORT INFORMATION
  Report Type: Report from Study
  Country: US (occurrence: US)
  Receive Date: 20230515
  Receipt Date: 20230515
  Transmission Date: 20230721
  Serious: Yes (Other)
  Sender: FDA-Public Use
  Company Number: US-ABBVIE-4724631

PATIENT
  Age: 50 Year
  Sex: Female

DRUGS (2)
  1. HUMIRA [Suspect]
     Active Substance: ADALIMUMAB
     Indication: Hidradenitis
     Route: 058
     Dates: start: 20220713
  2. HUMIRA [Suspect]
     Active Substance: ADALIMUMAB
     Route: 058

REACTIONS (6)
  - Cellulitis [Unknown]
  - Lung disorder [Not Recovered/Not Resolved]
  - Blood cholesterol increased [Not Recovered/Not Resolved]
  - Hidradenitis [Not Recovered/Not Resolved]
  - Immune system disorder [Unknown]
  - Hidradenitis [Recovered/Resolved]

NARRATIVE: CASE EVENT DATE: 20230401
